FAERS Safety Report 17195732 (Version 2)
Quarter: 2019Q4

REPORT INFORMATION
  Report Type: Spontaneous
  Country: US (occurrence: US)
  Receive Date: 20191224
  Receipt Date: 20191231
  Transmission Date: 20200122
  Serious: Yes (Death, Hospitalization, Other)
  Sender: FDA-Public Use
  Company Number: US-ROCHE-2504201

PATIENT
  Age: 89 Year
  Sex: Female
  Weight: 47.3 kg

DRUGS (4)
  1. ASPIRIN [ACETYLSALICYLIC ACID] [Concomitant]
     Active Substance: ASPIRIN
     Route: 048
  2. ACTIVASE [Suspect]
     Active Substance: ALTEPLASE
     Indication: ISCHAEMIC STROKE
     Dosage: ONE TIME DOSE
     Route: 042
     Dates: start: 20191217, end: 20191217
  3. COZAAR [Concomitant]
     Active Substance: LOSARTAN POTASSIUM
     Indication: HYPERTENSION
     Route: 048
  4. NAMENDA [Concomitant]
     Active Substance: MEMANTINE HYDROCHLORIDE
     Route: 048

REACTIONS (5)
  - Subarachnoid haemorrhage [Unknown]
  - Haemorrhage [Fatal]
  - Haemorrhage intracranial [Not Recovered/Not Resolved]
  - Amyloidosis [Unknown]
  - Cerebral microhaemorrhage [Unknown]

NARRATIVE: CASE EVENT DATE: 20191217
